FAERS Safety Report 7997180-8 (Version None)
Quarter: 2011Q4

REPORT INFORMATION
  Report Type: 
  Country: None (occurrence: None)
  Receive Date: 20111221
  Receipt Date: 20111207
  Transmission Date: 20120403
  Serious: Yes (Other)
  Sender: FDA-Public Use
  Company Number: PHHY2011DE00603

PATIENT
  Age: 80 Year
  Sex: Male
  Weight: 64 kg

DRUGS (6)
  1. SANDOSTATIN LAR [Suspect]
     Indication: NEUROENDOCRINE TUMOUR
     Dosage: 20 MG, EVERY 28 DAYS
     Route: 030
     Dates: start: 20030101, end: 20050101
  2. SANDOSTATIN LAR [Suspect]
     Dosage: 40 MG EVERY 28 DAYS
     Route: 030
     Dates: start: 20110101, end: 20110501
  3. SANDOSTATIN LAR [Suspect]
     Dosage: 20 MG, EVERY 28 DAYS
     Route: 030
     Dates: end: 20111001
  4. SANDOSTATIN LAR [Suspect]
     Dosage: 30 MG, EVERY 28 DAYS
     Route: 030
     Dates: start: 20111115
  5. SANDOSTATIN LAR [Suspect]
     Dosage: 30 MG, EVERY 28 DAYS
     Route: 030
     Dates: start: 20050101
  6. SANDOSTATIN [Suspect]
     Indication: NEUROENDOCRINE TUMOUR
     Dates: start: 20000101, end: 20030101

REACTIONS (8)
  - GENERAL PHYSICAL HEALTH DETERIORATION [None]
  - DIARRHOEA [None]
  - HYPOTENSION [None]
  - HEADACHE [None]
  - ABDOMINAL PAIN [None]
  - DEVELOPMENTAL COORDINATION DISORDER [None]
  - HYPERTENSIVE CRISIS [None]
  - DIZZINESS [None]
